FAERS Safety Report 15797031 (Version 1)
Quarter: 2019Q1

REPORT INFORMATION
  Report Type: Spontaneous
  Country: US (occurrence: US)
  Receive Date: 20190107
  Receipt Date: 20190107
  Transmission Date: 20190417
  Serious: No
  Sender: FDA-Public Use
  Company Number: None

PATIENT
  Age: 61 Year
  Sex: Female
  Weight: 99 kg

DRUGS (8)
  1. FAMOTIDINE TAB 40 [Concomitant]
  2. TAMOXIFEN CITRATE 20 MG [Concomitant]
  3. GLUCOSAMINE 2000MG [Concomitant]
  4. IBUPROFEN TAB 800 MG [Concomitant]
  5. AMLOD/BENAZPRL CAPSULE 5/10 [Suspect]
     Active Substance: AMLODIPINE BESYLATE\BENAZEPRIL HYDROCHLORIDE
     Indication: BLOOD PRESSURE MANAGEMENT
     Dosage: ?          QUANTITY:1 CAPSULE(S);?
     Route: 048
     Dates: start: 20181228, end: 20190103
  6. GLAXSEED OIL 1000 MG [Concomitant]
  7. LEVOTHYROXIN 175 MCG [Concomitant]
  8. COMPLETE MULTIVITAMIN OVER 50 AGE [Concomitant]

REACTIONS (6)
  - Flushing [None]
  - Chest discomfort [None]
  - Headache [None]
  - Product substitution issue [None]
  - Pain in extremity [None]
  - Neck pain [None]

NARRATIVE: CASE EVENT DATE: 20181228
